FAERS Safety Report 5078286-2 (Version None)
Quarter: 2006Q3

REPORT INFORMATION
  Report Type: 
  Country: None (occurrence: None)
  Receive Date: 20060811
  Receipt Date: 20060804
  Transmission Date: 20061208
  Serious: Yes (Hospitalization)
  Sender: FDA-Public Use
  Company Number: DE-MERCK-0608DEU00083

PATIENT
  Age: 39 Year
  Sex: Female
  Weight: 115 kg

DRUGS (11)
  1. SINGULAIR [Suspect]
     Indication: ASTHMA
     Route: 048
  2. FORMOTEROL FUMARATE [Suspect]
     Indication: ASTHMA
     Route: 055
  3. BUDESONIDE [Concomitant]
     Indication: ASTHMA
     Route: 055
  4. THEOPHYLLINE [Suspect]
     Indication: ASTHMA
     Route: 048
  5. ALBUTEROL [Suspect]
     Indication: ASTHMA
     Route: 048
  6. TERBUTALINE SULFATE [Suspect]
     Indication: ASTHMA
     Route: 048
  7. DESLORATADINE [Concomitant]
     Indication: ASTHMA
     Route: 048
  8. TERBUTALINE SULFATE [Suspect]
     Route: 055
  9. PREDNISOLONE [Suspect]
     Indication: ASTHMA
     Route: 048
     Dates: start: 19920101, end: 20010101
  10. PREDNISOLONE [Suspect]
     Route: 048
     Dates: start: 20010101, end: 20020601
  11. INTERFERON ALFACON-1 [Suspect]
     Indication: ASTHMA
     Route: 065
     Dates: start: 20010101

REACTIONS (7)
  - CUSHING'S SYNDROME [None]
  - DIABETES MELLITUS NON-INSULIN-DEPENDENT [None]
  - DRUG INEFFECTIVE [None]
  - FATIGUE [None]
  - LETHARGY [None]
  - RESPIRATORY TRACT INFECTION [None]
  - WEIGHT DECREASED [None]
